FAERS Safety Report 25669982 (Version 1)
Quarter: 2025Q3

REPORT INFORMATION
  Report Type: Spontaneous
  Country: GB (occurrence: GB)
  Receive Date: 20250812
  Receipt Date: 20250812
  Transmission Date: 20251020
  Serious: Yes (Other)
  Sender: SAMSUNG BIOEPIS
  Company Number: None

PATIENT
  Age: 69 Year
  Sex: Male
  Weight: 102 kg

DRUGS (3)
  1. ETANERCEPT [Suspect]
     Active Substance: ETANERCEPT
     Indication: Ankylosing spondylitis
     Dosage: 50MG ONCE A WEEK;
     Dates: start: 20250425, end: 20250728
  2. CITALOPRAM [Concomitant]
     Active Substance: CITALOPRAM
     Indication: Post-traumatic stress disorder
  3. CITALOPRAM [Concomitant]
     Active Substance: CITALOPRAM
     Indication: Depression

REACTIONS (3)
  - Hallucination [Recovering/Resolving]
  - Intrusive thoughts [Unknown]
  - Malaise [Unknown]

NARRATIVE: CASE EVENT DATE: 20250722
